FAERS Safety Report 5333334-7 (Version None)
Quarter: 2007Q2

REPORT INFORMATION
  Report Type: 
  Country: None (occurrence: None)
  Receive Date: 20070524
  Receipt Date: 20070511
  Transmission Date: 20071010
  Serious: Yes (Hospitalization)
  Sender: FDA-Public Use
  Company Number: FR-ELI_LILLY_AND_COMPANY-FR200703000138

PATIENT
  Age: 84 Year
  Sex: Female

DRUGS (3)
  1. MONO-TILDIEM [Concomitant]
     Indication: ANGINA PECTORIS
     Dosage: 200 MG, DAILY (1/D)
     Dates: start: 19900101
  2. FORTEO [Suspect]
     Indication: OSTEOPOROSIS
     Dosage: 20 UG, DAILY (1/D)
     Route: 058
     Dates: start: 20050218, end: 20060526
  3. LEVOTHYROXINE SODIUM [Concomitant]
     Indication: HYPOTHYROIDISM
     Dosage: 37.5 UG, DAILY (1/D)

REACTIONS (1)
  - HIP SURGERY [None]
